FAERS Safety Report 4481991-X (Version None)
Quarter: 2004Q4

REPORT INFORMATION
  Report Type: 
  Country: None (occurrence: None)
  Receive Date: 20041022
  Receipt Date: 20040920
  Transmission Date: 20050328
  Serious: Yes (Other)
  Sender: FDA-Public Use
  Company Number: BR-ABBOTT-04P-020-0275087-00

PATIENT
  Age: 11 Year
  Sex: Female
  Weight: 41 kg

DRUGS (6)
  1. DEPAKOTE [Suspect]
     Indication: DRUG USE FOR UNKNOWN INDICATION
     Route: 048
     Dates: start: 20030101
  2. VALPROATE SODIUM [Suspect]
     Indication: DRUG USE FOR UNKNOWN INDICATION
     Dates: start: 20030101, end: 20030101
  3. CEFUROXIME AXETIL [Concomitant]
     Indication: EAR INFECTION
     Route: 048
     Dates: start: 20030101, end: 20030101
  4. AMOXICILLIN [Concomitant]
     Indication: RHINITIS
     Route: 048
     Dates: start: 20040801, end: 20040801
  5. AMOXICILLIN [Concomitant]
     Indication: SINUSITIS
  6. LORATADINE [Concomitant]
     Indication: DRUG USE FOR UNKNOWN INDICATION
     Route: 048

REACTIONS (7)
  - ABDOMINAL PAIN [None]
  - BLOOD ALKALINE PHOSPHATASE INCREASED [None]
  - GAMMA-GLUTAMYLTRANSFERASE INCREASED [None]
  - HEADACHE [None]
  - HEPATIC FUNCTION ABNORMAL [None]
  - PROTEIN TOTAL INCREASED [None]
  - VOMITING [None]
